FAERS Safety Report 6994122-9 (Version None)
Quarter: 2010Q3

REPORT INFORMATION
  Report Type: 
  Country: None (occurrence: None)
  Receive Date: 20100917
  Receipt Date: 20070621
  Transmission Date: 20110219
  Serious: Yes (Hospitalization, Other)
  Sender: FDA-Public Use
  Company Number: US-ASTRAZENECA-2006UW07082

PATIENT
  Age: 15792 Day
  Sex: Male
  Weight: 128.8 kg

DRUGS (15)
  1. SEROQUEL [Suspect]
     Indication: DEPRESSION
     Dosage: 100-300 MG
     Route: 048
     Dates: start: 20030605
  2. SEROQUEL [Suspect]
     Indication: ANXIETY
     Dosage: 100-300 MG
     Route: 048
     Dates: start: 20030605
  3. SEROQUEL [Suspect]
     Indication: INSOMNIA
     Dosage: 100-300 MG
     Route: 048
     Dates: start: 20030605
  4. ZYPREXA [Concomitant]
  5. COCAINE [Concomitant]
     Dates: start: 20000101, end: 20000101
  6. GLYBURIDE [Concomitant]
     Route: 048
     Dates: start: 20020221
  7. PREDNISONE [Concomitant]
     Route: 048
     Dates: start: 20060307
  8. PANCRELIPASE [Concomitant]
     Dosage: THREE TABLETS A DAY
     Route: 048
     Dates: start: 20040314
  9. METOPROLOL [Concomitant]
     Route: 048
     Dates: start: 20010912
  10. INSULIN GLARGINE [Concomitant]
     Dosage: 30 UNITS
     Route: 058
     Dates: start: 20060305
  11. INSULIN LISPRO [Concomitant]
     Dosage: 15 UNITS
     Route: 058
     Dates: start: 20050609
  12. ACTOS [Concomitant]
     Route: 048
     Dates: start: 20040522
  13. ASPIRIN [Concomitant]
     Dosage: 81-325 MG
     Route: 048
     Dates: start: 20020404
  14. TRICOR [Concomitant]
     Route: 048
     Dates: start: 20060216
  15. INDERAL [Concomitant]
     Route: 048
     Dates: start: 20041228

REACTIONS (7)
  - ALCOHOLIC PANCREATITIS [None]
  - DIABETES MELLITUS [None]
  - DIABETES MELLITUS INADEQUATE CONTROL [None]
  - DIABETIC COMA [None]
  - HYPERGLYCAEMIA [None]
  - KETOACIDOSIS [None]
  - PANCREATITIS [None]
